FAERS Safety Report 24246736 (Version 3)
Quarter: 2024Q3

REPORT INFORMATION
  Report Type: Report from Study
  Country: EG (occurrence: EG)
  Receive Date: 20240826
  Receipt Date: 20240830
  Transmission Date: 20241016
  Serious: No
  Sender: SANDOZ
  Company Number: EG-SANDOZ-SDZ2024EG074710

PATIENT
  Sex: Male
  Weight: 22 kg

DRUGS (2)
  1. OMNITROPE [Suspect]
     Active Substance: SOMATROPIN
     Indication: Growth hormone deficiency
     Dosage: 0.9
     Route: 065
     Dates: start: 20240801
  2. ZINC [Concomitant]
     Active Substance: ZINC
     Indication: Growth hormone deficiency
     Dosage: 5 CM
     Route: 048
     Dates: start: 2022

REACTIONS (2)
  - Drug ineffective [Unknown]
  - Device issue [Unknown]
